FAERS Safety Report 5037569-2 (Version None)
Quarter: 2006Q2

REPORT INFORMATION
  Report Type: 
  Country: None (occurrence: None)
  Receive Date: 20060607
  Receipt Date: 20060426
  Transmission Date: 20061013
  Serious: No
  Sender: FDA-Public Use
  Company Number: 34588

PATIENT
  Sex: Female

DRUGS (3)
  1. NEVANAC [Suspect]
     Indication: PROPHYLAXIS
  2. VIGAMOX [Suspect]
  3. MAXIDEX 0.1% SUSPENSION [Concomitant]

REACTIONS (1)
  - HYPOAESTHESIA FACIAL [None]
